FAERS Safety Report 12304958 (Version 4)
Quarter: 2016Q3

REPORT INFORMATION
  Report Type: Spontaneous
  Country: CA (occurrence: CA)
  Receive Date: 20160426
  Receipt Date: 20160708
  Transmission Date: 20161109
  Serious: Yes (Other)
  Sender: FDA-Public Use
  Company Number: CA-AUROBINDO-AUR-APL-2016-05288

PATIENT
  Age: 60 Year
  Sex: Female

DRUGS (3)
  1. AURO-MIRTAZAPINE [Suspect]
     Active Substance: MIRTAZAPINE
     Indication: ANXIETY
     Dosage: 22.5 MG, DAILY, SPLITTING 45MG TABLET INTO 2 HALVES
     Route: 048
     Dates: start: 201501, end: 20160425
  2. AURO-MIRTAZAPINE [Suspect]
     Active Substance: MIRTAZAPINE
     Dosage: 7.5 MG, UNK
     Route: 048
  3. LYRICA [Concomitant]
     Active Substance: PREGABALIN
     Indication: ANXIETY
     Dosage: 75 MG BID, UNK
     Route: 048
     Dates: start: 201602

REACTIONS (2)
  - Low density lipoprotein increased [Not Recovered/Not Resolved]
  - Blood cholesterol increased [Not Recovered/Not Resolved]
